FAERS Safety Report 6544102-2 (Version None)
Quarter: 2010Q1

REPORT INFORMATION
  Report Type: 
  Country: None (occurrence: None)
  Receive Date: 20100114
  Receipt Date: 20091117
  Transmission Date: 20100710
  Serious: No
  Sender: FDA-Public Use
  Company Number: 2009BM000324

PATIENT
  Age: 6 Year
  Sex: Female

DRUGS (3)
  1. KUVAN [Suspect]
     Indication: PHENYLKETONURIA
     Dosage: 1400 MG;QD;PO : 700 MG;1X;PO : 700 MG;1X;PO
     Route: 048
     Dates: start: 20091031, end: 20091101
  2. KUVAN [Suspect]
     Indication: PHENYLKETONURIA
     Dosage: 1400 MG;QD;PO : 700 MG;1X;PO : 700 MG;1X;PO
     Route: 048
     Dates: start: 20091101, end: 20091101
  3. KUVAN [Suspect]
     Indication: PHENYLKETONURIA
     Dosage: 1400 MG;QD;PO : 700 MG;1X;PO : 700 MG;1X;PO
     Route: 048
     Dates: start: 20091111, end: 20091111

REACTIONS (1)
  - RASH [None]
